FAERS Safety Report 23045315 (Version 1)
Quarter: 2023Q4

REPORT INFORMATION
  Report Type: Report from Study
  Country: CH (occurrence: CH)
  Receive Date: 20231009
  Receipt Date: 20231009
  Transmission Date: 20240110
  Serious: Yes (Other)
  Sender: FDA-Public Use
  Company Number: CH-PERRIGO-23CH011479

PATIENT
  Age: 37 Year
  Sex: Female
  Weight: 59 kg

DRUGS (1)
  1. ULIPRISTAL ACETATE [Suspect]
     Active Substance: ULIPRISTAL ACETATE
     Indication: Post coital contraception
     Dosage: 1 DOSAGE FORM, SINGLE
     Route: 065
     Dates: start: 20230814

REACTIONS (2)
  - Abortion spontaneous [Recovered/Resolved]
  - Unintended pregnancy [Recovered/Resolved]

NARRATIVE: CASE EVENT DATE: 20230101
